FAERS Safety Report 18319150 (Version 1)
Quarter: 2020Q3

REPORT INFORMATION
  Report Type: Spontaneous
  Country: GB (occurrence: GB)
  Receive Date: 20200928
  Receipt Date: 20200928
  Transmission Date: 20201103
  Serious: No
  Sender: FDA-Public Use
  Company Number: None

PATIENT
  Age: 41 Year
  Sex: Female

DRUGS (9)
  1. TREMFYA [Concomitant]
     Active Substance: GUSELKUMAB
  2. E 45 500 G [Concomitant]
  3. EPIDERM [Concomitant]
     Active Substance: BETAMETHASONE VALERATE\CLIOQUINOL\GENTAMICIN SULFATE\TOLNAFTATE
  4. PHYSEPTONE [Concomitant]
     Active Substance: METHADONE HYDROCHLORIDE
  5. COCODAMOL [Concomitant]
     Active Substance: ACETAMINOPHEN\CODEINE PHOSPHATE
  6. BETNOVATE [Concomitant]
     Active Substance: BETAMETHASONE
  7. BETNOVATE SCALP APPLICATION [Concomitant]
  8. TREMFYA [Suspect]
     Active Substance: GUSELKUMAB
     Indication: PSORIASIS
     Dosage: ?          QUANTITY:1 INJECTION(S);?
     Route: 030
     Dates: start: 20200918
  9. PREGABALIN. [Concomitant]
     Active Substance: PREGABALIN

REACTIONS (4)
  - Swollen tongue [None]
  - Hypersensitivity [None]
  - Dizziness [None]
  - Flushing [None]

NARRATIVE: CASE EVENT DATE: 20200918
